FAERS Safety Report 10193511 (Version 1)
Quarter: 2014Q2

REPORT INFORMATION
  Report Type: Spontaneous
  Country: US (occurrence: US)
  Receive Date: 20140524
  Receipt Date: 20140524
  Transmission Date: 20141212
  Serious: No
  Sender: FDA-Public Use
  Company Number: US-SA-2013SA119407

PATIENT
  Age: 73 Year
  Sex: Female

DRUGS (3)
  1. LANTUS SOLOSTAR [Suspect]
     Indication: TYPE 2 DIABETES MELLITUS
     Dosage: DOSAGE: 50-60 UNITS
     Route: 051
  2. SOLOSTAR [Concomitant]
     Indication: TYPE 2 DIABETES MELLITUS
  3. ALLEGRA [Concomitant]

REACTIONS (8)
  - Nausea [Unknown]
  - Malaise [Unknown]
  - Memory impairment [Unknown]
  - Vomiting [Unknown]
  - Diarrhoea [Unknown]
  - Gastric disorder [Unknown]
  - Injection site pain [Unknown]
  - Blood glucose increased [Unknown]
